FAERS Safety Report 22585544 (Version 1)
Quarter: 2023Q2

REPORT INFORMATION
  Report Type: Report from Study
  Country: US (occurrence: US)
  Receive Date: 20230610
  Receipt Date: 20230610
  Transmission Date: 20230721
  Serious: Yes (Other)
  Sender: FDA-Public Use
  Company Number: US-ABBVIE-4757661

PATIENT
  Sex: Female

DRUGS (4)
  1. HUMIRA [Suspect]
     Active Substance: ADALIMUMAB
     Indication: Psoriatic arthropathy
     Dosage: TIME INTERVAL: TOTAL: FORM STRENGTH: 40 MILLIGRAM
     Route: 058
     Dates: start: 20220601, end: 20220601
  2. HUMIRA [Suspect]
     Active Substance: ADALIMUMAB
     Dosage: TIME INTERVAL: TOTAL: FORM STRENGTH: 40 MILLIGRAM
     Route: 058
     Dates: start: 20220608, end: 20220608
  3. HUMIRA [Suspect]
     Active Substance: ADALIMUMAB
     Route: 058
     Dates: start: 20180505, end: 2019
  4. COVID-19 VACCINE NOS [Suspect]
     Active Substance: COVID-19 VACCINE NOS
     Indication: COVID-19 immunisation
     Dosage: TIME INTERVAL: TOTAL: ONE IN ONCE
     Route: 030
     Dates: start: 2022, end: 2022

REACTIONS (19)
  - Injection site infection [Not Recovered/Not Resolved]
  - Needle issue [Not Recovered/Not Resolved]
  - Injection site discharge [Unknown]
  - Injection site bruising [Unknown]
  - Injection site discolouration [Recovered/Resolved with Sequelae]
  - Injection site mass [Recovering/Resolving]
  - Injection site pain [Recovered/Resolved with Sequelae]
  - Injection site granuloma [Not Recovered/Not Resolved]
  - Injection site swelling [Recovered/Resolved]
  - Injection site erythema [Recovered/Resolved]
  - Injection site pain [Recovered/Resolved]
  - Vaccine interaction [Unknown]
  - Injection site injury [Unknown]
  - Injection site erythema [Recovered/Resolved with Sequelae]
  - Gastric disorder [Unknown]
  - Injection site swelling [Recovered/Resolved]
  - Injection site swelling [Recovered/Resolved]
  - Mobility decreased [Recovered/Resolved]
  - Injection site inflammation [Unknown]

NARRATIVE: CASE EVENT DATE: 20220101
